FAERS Safety Report 22294527 (Version 2)
Quarter: 2024Q2

REPORT INFORMATION
  Report Type: Spontaneous
  Country: US (occurrence: US)
  Receive Date: 20230508
  Receipt Date: 20240415
  Transmission Date: 20240716
  Serious: No
  Sender: FDA-Public Use
  Company Number: US-ASTELLAS-2022US032270

PATIENT
  Sex: Female

DRUGS (4)
  1. LEXISCAN [Suspect]
     Active Substance: REGADENOSON
     Indication: Product used for unknown indication
     Dosage: UNK UNK, UNKNOWN FREQ. (STRENGTH:0.4 MG/5 ML)
     Route: 065
     Dates: start: 20220822, end: 20220822
  2. LEXISCAN [Suspect]
     Active Substance: REGADENOSON
     Indication: Product used for unknown indication
     Dosage: UNK UNK, UNKNOWN FREQ. (STRENGTH:0.4 MG/5 ML)
     Route: 065
     Dates: start: 20220822, end: 20220822
  3. LEXISCAN [Suspect]
     Active Substance: REGADENOSON
     Indication: Product used for unknown indication
     Dosage: UNK UNK, UNKNOWN FREQ. (STRENGTH:0.4 MG/5 ML)
     Route: 065
     Dates: start: 20220822, end: 20220822
  4. LEXISCAN [Suspect]
     Active Substance: REGADENOSON
     Indication: Product used for unknown indication
     Dosage: UNK UNK, UNKNOWN FREQ. (STRENGTH:0.4 MG/5 ML)
     Route: 065
     Dates: start: 20220822, end: 20220822

REACTIONS (1)
  - Exposure during pregnancy [Unknown]
